FAERS Safety Report 5007346-7 (Version None)
Quarter: 2006Q2

REPORT INFORMATION
  Report Type: 
  Country: None (occurrence: None)
  Receive Date: 20060517
  Receipt Date: 20060503
  Transmission Date: 20061013
  Serious: Yes (Other)
  Sender: FDA-Public Use
  Company Number: 2006BH005542

PATIENT

DRUGS (5)
  1. FENTANYL CITRATE [Suspect]
     Indication: SEDATIVE THERAPY
     Dosage: 200 UG; ONCE; ISPIN
     Route: 024
  2. MIDAZOLAM HCL [Suspect]
     Indication: SEDATIVE THERAPY
     Dosage: 4 MG; ONCE; ISPIN
     Route: 024
  3. HYPERBARIC BUPIVACAINE [Concomitant]
  4. FENTANYL [Concomitant]
  5. MORPHINE [Concomitant]

REACTIONS (4)
  - BLOOD PH DECREASED [None]
  - DRUG EXPOSURE DURING PREGNANCY [None]
  - MEDICATION ERROR [None]
  - NEONATAL DISORDER [None]
